FAERS Safety Report 5626482-5 (Version None)
Quarter: 2008Q1

REPORT INFORMATION
  Report Type: 
  Country: None (occurrence: None)
  Receive Date: 20080214
  Receipt Date: 20080204
  Transmission Date: 20080703
  Serious: Yes (Other)
  Sender: FDA-Public Use
  Company Number: US-ELI_LILLY_AND_COMPANY-US200712003377

PATIENT
  Sex: Female

DRUGS (8)
  1. FORTEO [Suspect]
     Indication: OSTEOPOROSIS
     Dosage: UNK, UNK
     Dates: start: 20070101
  2. FORTEO [Suspect]
     Dosage: UNK, UNK
  3. ACIPHEX [Concomitant]
     Indication: GASTROOESOPHAGEAL REFLUX DISEASE
     Dosage: 20 MG, DAILY (1/D)
  4. NEPHROCAPS [Concomitant]
  5. VYTORIN [Concomitant]
     Indication: BLOOD CHOLESTEROL INCREASED
  6. FOSAMAX [Concomitant]
     Dosage: 70 MG, WEEKLY (1/W)
  7. LISINOPRIL [Concomitant]
     Dosage: 10 MG, UNK
  8. ATENOLOL [Concomitant]
     Dosage: 12.5 MG, UNK

REACTIONS (1)
  - COLON CANCER [None]
